FAERS Safety Report 19378076 (Version 2)
Quarter: 2021Q2

REPORT INFORMATION
  Report Type: Report from Study
  Country: DE (occurrence: DE)
  Receive Date: 20210604
  Receipt Date: 20210607
  Transmission Date: 20210717
  Serious: Yes (Hospitalization, Other)
  Sender: FDA-Public Use
  Company Number: DE-CELLTRION INC.-2021DE007512

PATIENT

DRUGS (1)
  1. TRUXIMA [Suspect]
     Active Substance: RITUXIMAB-ABBS
     Indication: PRODUCT USED FOR UNKNOWN INDICATION

REACTIONS (11)
  - Trigeminal nerve disorder [Recovered/Resolved]
  - Nausea [Unknown]
  - Paraesthesia [Unknown]
  - Oropharyngeal pain [Unknown]
  - Pain [Unknown]
  - Panic attack [Unknown]
  - Anxiety [Unknown]
  - Back pain [Recovered/Resolved]
  - Hyperhidrosis [Unknown]
  - Fear [Unknown]
  - Dizziness [Unknown]

NARRATIVE: CASE EVENT DATE: 20190904
